FAERS Safety Report 8553375-6 (Version None)
Quarter: 2012Q3

REPORT INFORMATION
  Report Type: 
  Country: None (occurrence: None)
  Receive Date: 20120731
  Receipt Date: 20120723
  Transmission Date: 20120928
  Serious: Yes (Hospitalization)
  Sender: FDA-Public Use
  Company Number: US-ROCHE-1091260

PATIENT
  Sex: Female

DRUGS (1)
  1. VALCYTE [Suspect]
     Indication: PRODUCT USED FOR UNKNOWN INDICATION
     Dates: end: 20120401

REACTIONS (1)
  - GRAFT VERSUS HOST DISEASE [None]
